FAERS Safety Report 20361503 (Version 2)
Quarter: 2022Q2

REPORT INFORMATION
  Report Type: Report from Study
  Country: CN (occurrence: CN)
  Receive Date: 20220121
  Receipt Date: 20220420
  Transmission Date: 20220721
  Serious: Yes (Hospitalization, Other)
  Sender: FDA-Public Use
  Company Number: CN-BIOGEN-2022BI01087885

PATIENT
  Age: 2 Year
  Sex: Male
  Weight: 11 kg

DRUGS (6)
  1. SPINRAZA [Suspect]
     Active Substance: NUSINERSEN
     Indication: Spinal muscular atrophy
     Route: 037
     Dates: start: 20210709
  2. vitamin AD drops [Concomitant]
     Indication: Routine health maintenance
     Route: 048
     Dates: start: 201912
  3. VITAMIN B1 [Concomitant]
     Active Substance: THIAMINE HYDROCHLORIDE
     Indication: Routine health maintenance
     Route: 048
     Dates: start: 20210807
  4. VITAMIN B6 [Concomitant]
     Active Substance: PYRIDOXINE HYDROCHLORIDE
     Indication: Routine health maintenance
     Route: 048
     Dates: start: 20210807
  5. VITAMIN B6 [Concomitant]
     Active Substance: PYRIDOXINE HYDROCHLORIDE
     Dosage: 2 ML QD 1 IVGTT
     Route: 065
     Dates: start: 20211109
  6. VITAMIN B12 [Concomitant]
     Active Substance: CYANOCOBALAMIN
     Indication: Routine health maintenance
     Route: 048
     Dates: start: 20210807

REACTIONS (4)
  - Gastroenteritis [Recovered/Resolved]
  - Myocardial necrosis marker increased [Recovered/Resolved]
  - Seizure [Recovered/Resolved]
  - Pneumonia [Recovered/Resolved]

NARRATIVE: CASE EVENT DATE: 20211109
